FAERS Safety Report 18417283 (Version 1)
Quarter: 2020Q4

REPORT INFORMATION
  Report Type: Spontaneous
  Country: US (occurrence: US)
  Receive Date: 20201022
  Receipt Date: 20201022
  Transmission Date: 20210114
  Serious: No
  Sender: FDA-Public Use
  Company Number: 2020SGN02566

PATIENT
  Sex: Female

DRUGS (4)
  1. TUKYSA [Suspect]
     Active Substance: TUCATINIB
     Indication: BREAST CANCER FEMALE
     Dosage: 150 MG, BID
  2. TUKYSA [Suspect]
     Active Substance: TUCATINIB
     Dosage: 2 DF, EVERY OTHER DAY FOR ABOUT A WEEK
  3. TUKYSA [Suspect]
     Active Substance: TUCATINIB
     Dosage: 1 DF, QD
  4. TUKYSA [Suspect]
     Active Substance: TUCATINIB
     Dosage: 1 DF, BID

REACTIONS (7)
  - Pyrexia [Unknown]
  - Blood iron decreased [Unknown]
  - Weight decreased [Unknown]
  - Platelet count abnormal [Unknown]
  - Diarrhoea [Unknown]
  - Headache [Unknown]
  - Rash [Unknown]
